FAERS Safety Report 8503121-7 (Version None)
Quarter: 2012Q3

REPORT INFORMATION
  Report Type: 
  Country: None (occurrence: None)
  Receive Date: 20120711
  Receipt Date: 20120709
  Transmission Date: 20120928
  Serious: No
  Sender: FDA-Public Use
  Company Number: US-PFIZER INC-2012164556

PATIENT
  Sex: Male
  Weight: 72.6 kg

DRUGS (4)
  1. ESCITALOPRAM [Concomitant]
     Indication: DEPRESSION
     Dosage: 10 MG, 1X/DAY
  2. VITAMIN D [Concomitant]
     Dosage: UNK
  3. SUTENT [Suspect]
     Indication: LUNG NEOPLASM MALIGNANT
  4. SUTENT [Suspect]
     Indication: RENAL CANCER
     Dosage: 50 MG, ONCE DAILY FOR 28 DAYS AND WASHOUT PHASE OF 14 DAYS
     Route: 048
     Dates: start: 20120301

REACTIONS (3)
  - ERYTHEMA [None]
  - FEELING HOT [None]
  - SUNBURN [None]
